FAERS Safety Report 8348440-2 (Version None)
Quarter: 2012Q2

REPORT INFORMATION
  Report Type: 
  Country: None (occurrence: None)
  Receive Date: 20120509
  Receipt Date: 20120427
  Transmission Date: 20120825
  Serious: Yes (Other)
  Sender: FDA-Public Use
  Company Number: JP-FRI-1000030371

PATIENT
  Sex: Female

DRUGS (1)
  1. LEXAPRO [Suspect]
     Route: 048
     Dates: start: 20120216

REACTIONS (5)
  - HEADACHE [None]
  - CONVULSION [None]
  - MUSCLE RIGIDITY [None]
  - CORNEAL REFLEX DECREASED [None]
  - INSOMNIA [None]
